FAERS Safety Report 14111918 (Version 1)
Quarter: 2017Q4

REPORT INFORMATION
  Report Type: Spontaneous
  Country: SK (occurrence: SK)
  Receive Date: 20171020
  Receipt Date: 20171020
  Transmission Date: 20180321
  Serious: Yes (Hospitalization, Other)
  Sender: FDA-Public Use
  Company Number: SK-GILEAD-2017-0253779

PATIENT
  Age: 70 Year
  Sex: Male
  Weight: 93 kg

DRUGS (4)
  1. ZYDELIG [Suspect]
     Active Substance: IDELALISIB
     Dosage: 150 MG, QD
     Route: 048
     Dates: start: 201701
  2. ZYDELIG [Suspect]
     Active Substance: IDELALISIB
     Indication: CHRONIC LYMPHOCYTIC LEUKAEMIA
     Dosage: 2X 150MG OR 1X150 MG OR 2X150MG EACH SECOND DAY
     Route: 048
     Dates: start: 201605, end: 201612
  3. RITUXIMAB. [Concomitant]
     Active Substance: RITUXIMAB
     Indication: CHRONIC LYMPHOCYTIC LEUKAEMIA
     Dosage: 8X
     Dates: start: 201605, end: 201609
  4. ZYDELIG [Suspect]
     Active Substance: IDELALISIB
     Dosage: SET UP ACCORDING TO LIVER RESULTS (2X 150MG OR 1X150 MG OR 2X150MG EACH SECOND DAY)
     Route: 048

REACTIONS (7)
  - Colitis [Recovered/Resolved]
  - Chronic lymphocytic leukaemia [Unknown]
  - Diarrhoea [Recovering/Resolving]
  - Cytomegalovirus infection [Unknown]
  - Off label use [Unknown]
  - Bronchopulmonary aspergillosis [Unknown]
  - Neutropenia [Unknown]

NARRATIVE: CASE EVENT DATE: 20161124
